FAERS Safety Report 6425318-2 (Version None)
Quarter: 2009Q4

REPORT INFORMATION
  Report Type: 
  Country: None (occurrence: None)
  Receive Date: 20091103
  Receipt Date: 20091027
  Transmission Date: 20100525
  Serious: Yes (Death, Hospitalization, Congenital Anomaly)
  Sender: FDA-Public Use
  Company Number: A0680230A

PATIENT
  Sex: Male

DRUGS (2)
  1. PAXIL [Suspect]
     Dates: start: 19970101, end: 19980101
  2. VITAMIN AND MINERAL PRENATAL SUPPLEMENT W/ FOLIC ACID CAP [Concomitant]

REACTIONS (19)
  - ANAL ATRESIA [None]
  - AORTIC STENOSIS [None]
  - BRAIN STEM SYNDROME [None]
  - CEREBELLAR HYPOPLASIA [None]
  - CONGENITAL FOOT MALFORMATION [None]
  - CONGENITAL HAND MALFORMATION [None]
  - DIAPHRAGMATIC DISORDER [None]
  - DOUBLE OUTLET RIGHT VENTRICLE [None]
  - DRUG EXPOSURE DURING PREGNANCY [None]
  - DYSMORPHISM [None]
  - ECTOPIC KIDNEY [None]
  - GINGIVAL DISORDER [None]
  - HYPOPLASTIC LEFT HEART SYNDROME [None]
  - MUSCLE DISORDER [None]
  - ORGAN FAILURE [None]
  - PYELOCALIECTASIS [None]
  - RESPIRATORY DISTRESS [None]
  - VENTRICULAR HYPOPLASIA [None]
  - VENTRICULAR SEPTAL DEFECT [None]
